FAERS Safety Report 21881249 (Version 1)
Quarter: 2023Q1

REPORT INFORMATION
  Report Type: Other
  Country: AT (occurrence: AT)
  Receive Date: 20230118
  Receipt Date: 20230118
  Transmission Date: 20230417
  Serious: Yes (Hospitalization, Other)
  Sender: FDA-Public Use
  Company Number: AT-CELLTRION INC.-2023AT000598

PATIENT

DRUGS (38)
  1. TRASTUZUMAB [Suspect]
     Active Substance: TRASTUZUMAB
     Indication: HER2 positive breast cancer
     Dosage: 6 MG/KG (1 TIME PER 3 WEEKS)
     Dates: start: 20181016, end: 20200226
  2. DENOSUMAB [Suspect]
     Active Substance: DENOSUMAB
     Indication: HER2 positive breast cancer
     Dosage: 120 MG/KG, Q4WEEKS/ 1 TIME PER 4 WEEKS
     Route: 058
     Dates: start: 20190326
  3. PACLITAXEL [Suspect]
     Active Substance: PACLITAXEL
     Indication: HER2 positive breast cancer
     Dosage: 138.1 MG/KG, 1/WEEK / 1 TIME PER WEEK
     Route: 042
     Dates: start: 20181017, end: 20200226
  4. LAPATINIB [Suspect]
     Active Substance: LAPATINIB
     Indication: HER2 positive breast cancer
     Dosage: 1250 MG, QD (1 TIME PER DAY)
     Route: 048
     Dates: start: 20200715, end: 20210804
  5. CAPECITABINE [Suspect]
     Active Substance: CAPECITABINE
     Indication: HER2 positive breast cancer
     Dosage: 2000 MG, QD / 2 TIMES PER DAY
     Route: 048
     Dates: start: 20200715, end: 202109
  6. ADO-TRASTUZUMAB EMTANSINE [Suspect]
     Active Substance: ADO-TRASTUZUMAB EMTANSINE
     Indication: HER2 positive breast cancer
     Dosage: 3.6 MG/KG (1 TIME PER 3 WEEKS)
     Route: 042
     Dates: start: 20200227, end: 20200703
  7. PERTUZUMAB [Suspect]
     Active Substance: PERTUZUMAB
     Indication: HER2 positive breast cancer
     Dosage: 420 MG (1 TIME PER 3 WEEKS)
     Route: 042
     Dates: start: 20181016, end: 20200226
  8. VINORELBINE [Suspect]
     Active Substance: VINORELBINE TARTRATE
     Indication: HER2 positive breast cancer
     Dosage: 30 MG/M2 (DAY1+DAY8 FROM 28 DAYS)
     Route: 042
     Dates: start: 20210927
  9. BUPRENORPHINE HYDROCHLORIDE [Concomitant]
     Active Substance: BUPRENORPHINE HYDROCHLORIDE
     Dosage: 0.2 MG, PRN / 1 TIME AS NECESSARY
     Route: 060
     Dates: start: 20181023
  10. BUPRETEC [Concomitant]
     Dosage: 35.00 OTHER MCG/H 1 TIME PER 4 DAYS
     Route: 062
     Dates: start: 20211025
  11. Paracodin [Concomitant]
     Dosage: 20 DROP (20-20-20)
     Route: 048
     Dates: start: 20180715
  12. CLINDAMYCIN [Concomitant]
     Active Substance: CLINDAMYCIN
     Dosage: 300 MG (2-2-2)
     Route: 048
     Dates: start: 20181113, end: 20181119
  13. HYDROMORPHONE HYDROCHLORIDE [Concomitant]
     Active Substance: HYDROMORPHONE HYDROCHLORIDE
     Dosage: 8 MG
     Route: 048
     Dates: start: 20200826, end: 20200917
  14. HYDROMORPHONE HYDROCHLORIDE [Concomitant]
     Active Substance: HYDROMORPHONE HYDROCHLORIDE
     Dosage: 1.3 MG, PRN / ONCE AS NECESSARY
     Route: 048
     Dates: start: 20211027
  15. HYDROMORPHONE HYDROCHLORIDE [Concomitant]
     Active Substance: HYDROMORPHONE HYDROCHLORIDE
     Dosage: 2.6 MG
     Route: 048
     Dates: start: 20200826, end: 20200917
  16. POLYETHYLENE GLYCOL 3350\POTASSIUM CHLORIDE\SODIUM BICARBONATE\SODIUM [Concomitant]
     Active Substance: POLYETHYLENE GLYCOL 3350\POTASSIUM CHLORIDE\SODIUM BICARBONATE\SODIUM CHLORIDE
     Dosage: 13.8 G, QD / ONCE DAILY
     Route: 048
     Dates: start: 20181023
  17. EMEND [Concomitant]
     Active Substance: APREPITANT
     Dosage: 125 MG, 1/WEEK / 1 TIME PER WEEK
     Route: 048
     Dates: start: 20181120, end: 20200703
  18. Selexid [Concomitant]
     Dosage: 200 MG, QD / 3 TIMES PER DAY
     Route: 048
     Dates: start: 20191016, end: 20191020
  19. LACTULOSE [Concomitant]
     Active Substance: LACTULOSE
     Dosage: UNK, PRN (1 UNIT AS NECESSARY)
     Route: 048
     Dates: start: 20200826
  20. Baneocin [Concomitant]
     Dosage: UNK, QD
     Route: 061
     Dates: start: 20190108, end: 20190114
  21. DIPYRONE [Concomitant]
     Active Substance: DIPYRONE
  22. CANDESARTAN [Concomitant]
     Active Substance: CANDESARTAN
  23. NEURONTIN [Concomitant]
     Active Substance: GABAPENTIN
     Dosage: UNK
     Dates: start: 20211027
  24. PANTOPRAZOLE SODIUM [Concomitant]
     Active Substance: PANTOPRAZOLE SODIUM
  25. FUCIDIN [Concomitant]
     Active Substance: FUSIDATE SODIUM
     Dosage: 250 MG, QD (3 TIMES PER DAY)
     Route: 048
     Dates: start: 20181113, end: 20181120
  26. ZOFRAN [Concomitant]
     Active Substance: ONDANSETRON HYDROCHLORIDE
     Dosage: 8 MG, 1/WEEK (1 TIME PER WEEK)
     Route: 042
     Dates: start: 20181017, end: 20200703
  27. CAPSAICIN [Concomitant]
     Active Substance: CAPSAICIN
     Dosage: 0.03 %
     Route: 061
     Dates: start: 20200826, end: 20200917
  28. NOVALGIN (METAMIZOLE SODIUM) [Concomitant]
     Active Substance: METAMIZOLE SODIUM
     Dosage: 500 MG (2-2-2)
     Route: 048
     Dates: start: 20181023
  29. DIPHENHYDRAMINE HYDROCHLORIDE [Concomitant]
     Active Substance: DIPHENHYDRAMINE HYDROCHLORIDE
     Dosage: 600 MG, 1/WEEK (1 TIME PER WEEK)
     Route: 042
     Dates: start: 20200703
  30. Paspertin [Concomitant]
     Dosage: 10 MG (1-1-1)
     Route: 048
     Dates: start: 20181023
  31. RANITIDINE HYDROCHLORIDE [Concomitant]
     Active Substance: RANITIDINE HYDROCHLORIDE
     Dosage: 50 MG, 1/WEEK (1 TIME PER WEEK)
     Route: 042
     Dates: start: 20181017, end: 20200703
  32. BETAMETHASONE DIPROPIONATE [Concomitant]
     Active Substance: BETAMETHASONE DIPROPIONATE
     Dosage: ONCE DAILY
     Route: 061
     Dates: start: 20190108, end: 20190114
  33. BETAMETHASONE DIPROPIONATE [Concomitant]
     Active Substance: BETAMETHASONE DIPROPIONATE
     Dosage: 60 MG
     Route: 042
     Dates: start: 20200703
  34. LEVETIRACETAM [Concomitant]
     Active Substance: LEVETIRACETAM
     Dosage: 100 MG (1-0-1)
     Route: 048
     Dates: start: 20211125
  35. DEXAMETHASONE [Concomitant]
     Active Substance: DEXAMETHASONE
     Dosage: UNK
     Dates: start: 20211105
  36. Astec [Concomitant]
     Dosage: 35 MICROGRAM (ONCE EVERY 3 DAYS)
     Route: 062
     Dates: start: 20181023
  37. AMOXICILLIN\CLAVULANATE POTASSIUM [Concomitant]
     Active Substance: AMOXICILLIN\CLAVULANATE POTASSIUM
     Dosage: 1 G, QD (2 TIMES PER DAY)
     Route: 048
     Dates: start: 20190926, end: 20191005
  38. ZOFRAN [Concomitant]
     Active Substance: ONDANSETRON HYDROCHLORIDE
     Dosage: 4 MG (1-0-1)
     Route: 060
     Dates: start: 20181023

REACTIONS (1)
  - Cerebral vasoconstriction [Recovered/Resolved]

NARRATIVE: CASE EVENT DATE: 20211025
